FAERS Safety Report 23939205 (Version 1)
Quarter: 2024Q2

REPORT INFORMATION
  Report Type: Spontaneous
  Country: US (occurrence: None)
  Receive Date: 20240604
  Receipt Date: 20240604
  Transmission Date: 20240715
  Serious: No
  Sender: FDA-Public Use
  Company Number: US-ARIS GLOBAL-UCM202403-000214

PATIENT
  Sex: Male

DRUGS (2)
  1. AMITRIPTYLINE HYDROCHLORIDE [Suspect]
     Active Substance: AMITRIPTYLINE HYDROCHLORIDE
     Indication: Insomnia
  2. AMITRIPTYLINE HYDROCHLORIDE [Suspect]
     Active Substance: AMITRIPTYLINE HYDROCHLORIDE
     Indication: Restless legs syndrome

REACTIONS (6)
  - Feeling abnormal [Unknown]
  - Abdominal pain upper [Unknown]
  - Fatigue [Unknown]
  - Somnolence [Unknown]
  - Drug interaction [Unknown]
  - Product use in unapproved indication [Unknown]
